FAERS Safety Report 7831176-1 (Version None)
Quarter: 2011Q4

REPORT INFORMATION
  Report Type: 
  Country: None (occurrence: None)
  Receive Date: 20111021
  Receipt Date: 20111007
  Transmission Date: 20120403
  Serious: Yes (Other)
  Sender: FDA-Public Use
  Company Number: JP-CTI_01410_2011

PATIENT
  Age: 26 Year
  Sex: Female

DRUGS (1)
  1. MEIACT MS TABLET (CEFDITOREN PIVOXIL) [Suspect]
     Indication: LYMPHADENITIS
     Dosage: 300 MG
     Route: 048
     Dates: start: 20110818, end: 20110825

REACTIONS (4)
  - CONSTIPATION [None]
  - MALAISE [None]
  - DECREASED APPETITE [None]
  - HEPATIC FUNCTION ABNORMAL [None]
